FAERS Safety Report 5583094-X (Version None)
Quarter: 2008Q1

REPORT INFORMATION
  Report Type: 
  Country: None (occurrence: None)
  Receive Date: 20080107
  Receipt Date: 20080103
  Transmission Date: 20080703
  Serious: Yes (Disabling)
  Sender: FDA-Public Use
  Company Number: US-BRISTOL-MYERS SQUIBB COMPANY-14009336

PATIENT
  Age: 70 Year
  Sex: Female

DRUGS (4)
  1. IXEMPRA [Suspect]
     Indication: BREAST CANCER METASTATIC
     Route: 042
     Dates: start: 20071206, end: 20071206
  2. ALOXI [Concomitant]
     Route: 042
  3. BENADRYL [Concomitant]
     Route: 042
  4. TAGAMET [Concomitant]

REACTIONS (4)
  - GAIT DISTURBANCE [None]
  - INCONTINENCE [None]
  - LETHARGY [None]
  - RASH [None]
